FAERS Safety Report 8707617 (Version 2)
Quarter: 2013Q4

REPORT INFORMATION
  Report Type: Spontaneous
  Country: US (occurrence: US)
  Receive Date: 20120805
  Receipt Date: 20131101
  Transmission Date: 20140711
  Serious: No
  Sender: FDA-Public Use
  Company Number: US-009507513-1207USA012270

PATIENT
  Age: 69 Year
  Sex: Female

DRUGS (7)
  1. PRINZIDE [Suspect]
     Route: 048
  2. SYMBICORT [Suspect]
     Dosage: 160/4.5 MCG, TWO PUFFS
     Route: 055
  3. ROPINIROLE [Concomitant]
  4. LORATADINE [Concomitant]
  5. LEVOTHYROXINE SODIUM [Concomitant]
  6. CYMBALTA [Concomitant]
  7. PRAVASTATIN SODIUM [Concomitant]

REACTIONS (3)
  - Feeling drunk [Unknown]
  - Dizziness [Unknown]
  - Dyspnoea [Unknown]
